FAERS Safety Report 6697602-9 (Version None)
Quarter: 2010Q2

REPORT INFORMATION
  Report Type: 
  Country: None (occurrence: None)
  Receive Date: 20100422
  Receipt Date: 20100416
  Transmission Date: 20101027
  Serious: Yes (Death, Other)
  Sender: FDA-Public Use
  Company Number: 2010US001304

PATIENT
  Age: 60 Year
  Sex: Male

DRUGS (5)
  1. PROGRAF [Suspect]
     Indication: RENAL AND LIVER TRANSPLANT
  2. MYCOPHENOLATE MOFETIL [Suspect]
     Indication: RENAL AND LIVER TRANSPLANT
  3. BASILIXIMAB (BASILIXIMAB) [Suspect]
     Indication: RENAL AND LIVER TRANSPLANT
  4. AZATHIOPRINE [Suspect]
     Indication: RENAL AND LIVER TRANSPLANT
  5. PREDNISONE TAB [Suspect]
     Indication: RENAL AND LIVER TRANSPLANT

REACTIONS (9)
  - ASCITES [None]
  - CLOSTRIDIUM DIFFICILE COLITIS [None]
  - EPSTEIN-BARR VIRUS ASSOCIATED LYMPHOPROLIFERATIVE DISORDER [None]
  - ESCHERICHIA INFECTION [None]
  - HYDROPNEUMOTHORAX [None]
  - PERITONITIS [None]
  - PLEURAL EFFUSION [None]
  - SEPSIS [None]
  - TORULOPSIS INFECTION [None]
